FAERS Safety Report 16552326 (Version 1)
Quarter: 2019Q3

REPORT INFORMATION
  Report Type: Spontaneous
  Country: US (occurrence: US)
  Receive Date: 20190529
  Receipt Date: 20190529
  Transmission Date: 20191004
  Serious: No
  Sender: FDA-Public Use
  Company Number: None

PATIENT
  Sex: Female

DRUGS (1)
  1. MYCOPHENOLATE 500MG ROXANE [Suspect]
     Active Substance: MYCOPHENOLATE MOFETIL
     Dosage: 1000MG/1500MG AM/PM ORAL??UNKNOWN TO HOLD
     Route: 048

REACTIONS (3)
  - Computerised tomogram abnormal [None]
  - Therapy cessation [None]
  - Mass [None]
